FAERS Safety Report 17411548 (Version 1)
Quarter: 2020Q1

REPORT INFORMATION
  Report Type: Spontaneous
  Country: US (occurrence: US)
  Receive Date: 20200128
  Receipt Date: 20200128
  Transmission Date: 20200409
  Serious: Yes (Disabling)
  Sender: FDA-Public Use
  Company Number: None

PATIENT
  Age: 72 Year

DRUGS (1)
  1. GADAVIST [Suspect]
     Active Substance: GADOBUTROL

REACTIONS (8)
  - Neuropathy peripheral [None]
  - Burning sensation [None]
  - Hepatic cirrhosis [None]
  - Bone pain [None]
  - Cystitis [None]
  - Paraesthesia [None]
  - Musculoskeletal chest pain [None]
  - Dyspnoea [None]

NARRATIVE: CASE EVENT DATE: 20170917
